FAERS Safety Report 17703145 (Version 9)
Quarter: 2021Q3

REPORT INFORMATION
  Report Type: Spontaneous
  Country: US (occurrence: US)
  Receive Date: 20200424
  Receipt Date: 20210923
  Transmission Date: 20211014
  Serious: Yes (Hospitalization)
  Sender: FDA-Public Use
  Company Number: US-SHIRE-US202014429

PATIENT
  Age: 58 Year
  Sex: Female
  Weight: 89.34 kg

DRUGS (10)
  1. NATPARA (PARATHYROID HORMONE) [Suspect]
     Active Substance: PARATHYROID HORMONE
     Indication: HYPERPARATHYROIDISM
  2. NATPARA (PARATHYROID HORMONE) [Suspect]
     Active Substance: PARATHYROID HORMONE
     Indication: HYPOPARATHYROIDISM
     Dosage: 50 MICROGRAM
     Route: 058
  3. NATPARA (PARATHYROID HORMONE) [Suspect]
     Active Substance: PARATHYROID HORMONE
     Indication: HYPOPARATHYROIDISM
     Dosage: 50 MICROGRAM
     Route: 058
  4. NATPARA (PARATHYROID HORMONE) [Suspect]
     Active Substance: PARATHYROID HORMONE
     Indication: PAPILLARY THYROID CANCER
     Dosage: 50 MICROGRAM, QD
     Route: 058
  5. NATPARA (PARATHYROID HORMONE) [Suspect]
     Active Substance: PARATHYROID HORMONE
     Indication: HYPERPARATHYROIDISM
  6. NATPARA (PARATHYROID HORMONE) [Suspect]
     Active Substance: PARATHYROID HORMONE
     Indication: PAPILLARY THYROID CANCER
     Dosage: 50 MICROGRAM, QD
     Route: 058
  7. NATPARA (PARATHYROID HORMONE) [Suspect]
     Active Substance: PARATHYROID HORMONE
     Indication: HYPERPARATHYROIDISM
  8. NATPARA (PARATHYROID HORMONE) [Suspect]
     Active Substance: PARATHYROID HORMONE
     Indication: HYPOPARATHYROIDISM
     Dosage: 50 MICROGRAM
     Route: 058
  9. NATPARA (PARATHYROID HORMONE) [Suspect]
     Active Substance: PARATHYROID HORMONE
     Indication: PAPILLARY THYROID CANCER
     Dosage: 50 MICROGRAM, QD
     Route: 058
  10. LEVOTHYROXINE. [Concomitant]
     Active Substance: LEVOTHYROXINE
     Indication: HYPOTHYROIDISM
     Dosage: 166 MICROGRAM, QD
     Route: 048

REACTIONS (10)
  - Dyspnoea [Recovered/Resolved]
  - Hypoaesthesia [Unknown]
  - Mole excision [Unknown]
  - Fatigue [Unknown]
  - Nausea [Unknown]
  - Blood calcium decreased [Unknown]
  - Spinal operation [Unknown]
  - Blood iron decreased [Unknown]
  - Arthralgia [Unknown]
  - Tracheal disorder [Unknown]

NARRATIVE: CASE EVENT DATE: 20200529
